FAERS Safety Report 19108558 (Version 2)
Quarter: 2021Q4

REPORT INFORMATION
  Report Type: Spontaneous
  Country: GB (occurrence: GB)
  Receive Date: 20210408
  Receipt Date: 20211112
  Transmission Date: 20220303
  Serious: Yes (Other)
  Sender: FDA-Public Use
  Company Number: None

PATIENT
  Age: 26 Year
  Sex: Male
  Weight: 114 kg

DRUGS (1)
  1. SERTRALINE [Suspect]
     Active Substance: SERTRALINE HYDROCHLORIDE
     Indication: Depression
     Dosage: 50MG
     Route: 048
     Dates: start: 20200101, end: 20210320

REACTIONS (2)
  - Amnesia [Recovering/Resolving]
  - Dysphemia [Unknown]

NARRATIVE: CASE EVENT DATE: 20200311
